FAERS Safety Report 24991725 (Version 1)
Quarter: 2025Q1

REPORT INFORMATION
  Report Type: Spontaneous
  Country: GB (occurrence: GB)
  Receive Date: 20250220
  Receipt Date: 20250220
  Transmission Date: 20250409
  Serious: Yes (Other)
  Sender: IPSEN BIOPHARMACEUTICALS, INC.
  Company Number: GB-IPSEN Group, Research and Development-2025-03540

PATIENT
  Age: 63 Year
  Sex: Male

DRUGS (2)
  1. LANREOTIDE ACETATE [Suspect]
     Active Substance: LANREOTIDE ACETATE
     Indication: Small intestine neuroendocrine tumour
     Route: 065
  2. COLESEVELAM [Suspect]
     Active Substance: COLESEVELAM
     Indication: Product used for unknown indication

REACTIONS (8)
  - Pancreatic failure [Unknown]
  - Retinal disorder [Unknown]
  - Vitamin B12 deficiency [Unknown]
  - Gastrointestinal microorganism overgrowth [Unknown]
  - Blood selenium decreased [Unknown]
  - Bile acid malabsorption [Unknown]
  - Vitamin A deficiency [Unknown]
  - Vitamin D decreased [Unknown]
